FAERS Safety Report 11245761 (Version 1)
Quarter: 2015Q3

REPORT INFORMATION
  Report Type: Spontaneous
  Country: US (occurrence: US)
  Receive Date: 20150707
  Receipt Date: 20150707
  Transmission Date: 20151125
  Serious: Yes (Other)
  Sender: FDA-Public Use
  Company Number: US-AMEDRA PHARMACEUTICALS LLC-2015AMD00126

PATIENT
  Age: 20 Year
  Sex: Male

DRUGS (15)
  1. MIDAZOLAM [Concomitant]
     Active Substance: MIDAZOLAM\MIDAZOLAM HYDROCHLORIDE
     Dosage: 2 MG, UNK
  2. PHENYLEPHRINE [Concomitant]
     Active Substance: PHENYLEPHRINE\PHENYLEPHRINE HYDROCHLORIDE
  3. NITROUS OXIDE. [Concomitant]
     Active Substance: NITROUS OXIDE
  4. ONDANSETRON [Concomitant]
     Active Substance: ONDANSETRON
     Dosage: 8 MG, UNK
  5. THIOPENTAL [Concomitant]
     Active Substance: THIOPENTAL
  6. VECURONIUM [Concomitant]
     Active Substance: VECURONIUM BROMIDE
  7. KETOROLAC [Concomitant]
     Active Substance: KETOROLAC\KETOROLAC TROMETHAMINE
     Dosage: 30 MG, UNK
  8. LIDOCAINE. [Concomitant]
     Active Substance: LIDOCAINE
  9. ISOFLURANE. [Concomitant]
     Active Substance: ISOFLURANE
  10. LIDOCAINE. [Suspect]
     Active Substance: LIDOCAINE
     Dosage: 2 %, BY INFILTRATION
  11. METHYLPREDNISOLONE. [Concomitant]
     Active Substance: METHYLPREDNISOLONE
     Dosage: 125 MG, EVERY 6 HOURS
  12. FENTANYL. [Concomitant]
     Active Substance: FENTANYL
     Dosage: 350 ?G, UNK
  13. ESMOLOL [Concomitant]
     Active Substance: ESMOLOL HYDROCHLORIDE
     Dosage: 180 MG, UNK
  14. EPINEPHRINE. [Suspect]
     Active Substance: EPINEPHRINE
     Indication: OSTEOTOMY
     Dosage: 1:100,000, BY INFILTRATION
  15. MORPHINE [Concomitant]
     Active Substance: MORPHINE
     Dosage: 10 MG, UNK

REACTIONS (3)
  - Pupil fixed [Recovered/Resolved]
  - Pupils unequal [Recovered/Resolved]
  - Extraocular muscle disorder [Recovered/Resolved]
